FAERS Safety Report 7048589-0 (Version None)
Quarter: 2010Q4

REPORT INFORMATION
  Report Type: 
  Country: None (occurrence: None)
  Receive Date: 20101018
  Receipt Date: 20101008
  Transmission Date: 20110411
  Serious: No
  Sender: FDA-Public Use
  Company Number: US-ROXANE LABORATORIES, INC.-2010-RO-01161RO

PATIENT
  Sex: Male

DRUGS (1)
  1. CODEINE SUL TAB [Suspect]
     Dosage: 60 MG

REACTIONS (1)
  - DRUG EFFECT DECREASED [None]
